FAERS Safety Report 21402841 (Version 2)
Quarter: 2023Q1

REPORT INFORMATION
  Report Type: Report from Study
  Country: US (occurrence: US)
  Receive Date: 20221003
  Receipt Date: 20230102
  Transmission Date: 20230417
  Serious: No
  Sender: FDA-Public Use
  Company Number: US-ABBVIE-4135776

PATIENT
  Age: 57 Year
  Sex: Female

DRUGS (21)
  1. RINVOQ [Suspect]
     Active Substance: UPADACITINIB
     Indication: Rheumatoid arthritis
     Route: 048
     Dates: start: 20210729
  2. DULOXETINE CAP 30MG [Concomitant]
     Indication: Product used for unknown indication
  3. PREDNISONE [Concomitant]
     Active Substance: PREDNISONE
     Indication: Product used for unknown indication
  4. SHINGRIX INJ 50/0.5ML [Concomitant]
     Indication: Product used for unknown indication
  5. JARDIANCE TAB 25MG [Concomitant]
     Indication: Product used for unknown indication
  6. ENALAPR/HCTZ TAB 10-25MG [Concomitant]
     Indication: Product used for unknown indication
  7. BACLOFEN TAB 20MG [Concomitant]
     Indication: Product used for unknown indication
  8. LEVOTHYROXIN TAB 137MCG [Concomitant]
     Indication: Product used for unknown indication
  9. NEO/POLY/DEX OIN 0.1% OP [Concomitant]
     Indication: Product used for unknown indication
  10. BYDUREON BC INJ 2/0.85ML [Concomitant]
     Indication: Product used for unknown indication
  11. ZOLPIDEM ER TAB 12.5MG [Concomitant]
     Indication: Product used for unknown indication
  12. METFORMIN TAB 500MG ER [Concomitant]
     Indication: Product used for unknown indication
  13. CYCLOBENZAPR TAB 5MG [Concomitant]
     Indication: Product used for unknown indication
  14. LORAZEPAM TAB 0.5MG [Concomitant]
     Indication: Product used for unknown indication
  15. PIOGLITAZONE TAB 30MG [Concomitant]
     Indication: Product used for unknown indication
  16. RESTASIS EMU 0.05% [Concomitant]
     Indication: Product used for unknown indication
  17. CYCLOSET TAB 0.8MG [Concomitant]
     Indication: Product used for unknown indication
  18. VITAMIN D CAP 50000UNT [Concomitant]
     Indication: Product used for unknown indication
  19. TRAMADLJAPAP TAB 37.5-325 [Concomitant]
     Indication: Product used for unknown indication
  20. ATORVASTATIN TAB 10MG [Concomitant]
     Indication: Product used for unknown indication
  21. CYANOCOBALAM INJ 1000MCG [Concomitant]
     Indication: Product used for unknown indication

REACTIONS (3)
  - Rheumatoid arthritis [Unknown]
  - Loss of personal independence in daily activities [Unknown]
  - Pain [Unknown]

NARRATIVE: CASE EVENT DATE: 20220801
